FAERS Safety Report 6904637-7 (Version None)
Quarter: 2010Q3

REPORT INFORMATION
  Report Type: 
  Country: None (occurrence: None)
  Receive Date: 20100804
  Receipt Date: 20090625
  Transmission Date: 20110219
  Serious: No
  Sender: FDA-Public Use
  Company Number: US-PFIZER INC-2009187181

PATIENT
  Sex: Female

DRUGS (6)
  1. LYRICA [Suspect]
     Indication: PAIN IN JAW
     Route: 048
     Dates: start: 20090317
  2. METOPROLOL [Concomitant]
     Dosage: UNK
  3. ATIVAN [Concomitant]
     Dosage: UNK
  4. FAMOTIDINE [Concomitant]
     Dosage: UNK
  5. DURAGESIC-100 [Concomitant]
     Dosage: UNK
     Route: 062
  6. DILAUDID [Concomitant]
     Dosage: UNK

REACTIONS (1)
  - OEDEMA MOUTH [None]
